FAERS Safety Report 7423943-3 (Version None)
Quarter: 2011Q2

REPORT INFORMATION
  Report Type: 
  Country: None (occurrence: None)
  Receive Date: 20110419
  Receipt Date: 20110413
  Transmission Date: 20111010
  Serious: Yes (Other)
  Sender: FDA-Public Use
  Company Number: A0912907A

PATIENT
  Sex: Male

DRUGS (2)
  1. QVAR 40 [Concomitant]
  2. VENTOLIN [Suspect]
     Indication: ASTHMA
     Dosage: 1PUFF FOUR TIMES PER DAY
     Route: 055

REACTIONS (5)
  - ASTHMA [None]
  - COUGH [None]
  - PRODUCT QUALITY ISSUE [None]
  - ILL-DEFINED DISORDER [None]
  - DRUG INEFFECTIVE [None]
